FAERS Safety Report 4408597-2 (Version None)
Quarter: 2004Q3

REPORT INFORMATION
  Report Type: 
  Country: None (occurrence: None)
  Receive Date: 20040723
  Receipt Date: 20040716
  Transmission Date: 20050211
  Serious: Yes (Life-Threatening, Hospitalization)
  Sender: FDA-Public Use
  Company Number: DE-JNJFOC-20040600365

PATIENT
  Age: 68 Year
  Sex: Female

DRUGS (14)
  1. CAELYX (DOXORUBICIN HYDROCHLORIDE) LIPOSOME INJECTION [Suspect]
     Indication: OVARIAN CANCER
     Dosage: 70 MG, INTRAVENOUS : 74 MG, INTRAVENOUS : 70 MG, INTRAVENOUS : 71 MG, INTRAVENOUS
     Route: 042
     Dates: start: 20040310, end: 20040310
  2. CAELYX (DOXORUBICIN HYDROCHLORIDE) LIPOSOME INJECTION [Suspect]
     Indication: OVARIAN CANCER
     Dosage: 70 MG, INTRAVENOUS : 74 MG, INTRAVENOUS : 70 MG, INTRAVENOUS : 71 MG, INTRAVENOUS
     Route: 042
     Dates: start: 20040407, end: 20040407
  3. CAELYX (DOXORUBICIN HYDROCHLORIDE) LIPOSOME INJECTION [Suspect]
     Indication: OVARIAN CANCER
     Dosage: 70 MG, INTRAVENOUS : 74 MG, INTRAVENOUS : 70 MG, INTRAVENOUS : 71 MG, INTRAVENOUS
     Route: 042
     Dates: start: 20040505, end: 20040505
  4. CAELYX (DOXORUBICIN HYDROCHLORIDE) LIPOSOME INJECTION [Suspect]
     Indication: OVARIAN CANCER
     Dosage: 70 MG, INTRAVENOUS : 74 MG, INTRAVENOUS : 70 MG, INTRAVENOUS : 71 MG, INTRAVENOUS
     Route: 042
     Dates: start: 20040618, end: 20040618
  5. CARBOPLATIN [Suspect]
     Indication: OVARIAN CANCER
     Dosage: 640 MG , INTRAVENOUS : 650 MG, INTRAVENOUS : 580 MG, INTRAVENOUS : 450 MG, INTRAVENOUS
     Route: 042
     Dates: start: 20040310, end: 20040310
  6. CARBOPLATIN [Suspect]
     Indication: OVARIAN CANCER
     Dosage: 640 MG , INTRAVENOUS : 650 MG, INTRAVENOUS : 580 MG, INTRAVENOUS : 450 MG, INTRAVENOUS
     Route: 042
     Dates: start: 20040407, end: 20040407
  7. CARBOPLATIN [Suspect]
     Indication: OVARIAN CANCER
     Dosage: 640 MG , INTRAVENOUS : 650 MG, INTRAVENOUS : 580 MG, INTRAVENOUS : 450 MG, INTRAVENOUS
     Route: 042
     Dates: start: 20040505, end: 20040505
  8. CARBOPLATIN [Suspect]
     Indication: OVARIAN CANCER
     Dosage: 640 MG , INTRAVENOUS : 650 MG, INTRAVENOUS : 580 MG, INTRAVENOUS : 450 MG, INTRAVENOUS
     Route: 042
     Dates: start: 20040618, end: 20040618
  9. FORTECORTIN (DEXAMETHASONE) TABLETS [Suspect]
     Indication: NAUSEA
     Dosage: 4 MG, 2 IN 1 DAY, ORAL : 4 MG 1 IN 1 DAY , ORAL : 4 MG, 2 IN 1 DAY, ORAL : 20 MG, 1 IN 1 DAY, ORAL
     Route: 048
     Dates: start: 20040308, end: 20040309
  10. FORTECORTIN (DEXAMETHASONE) TABLETS [Suspect]
     Indication: NAUSEA
     Dosage: 4 MG, 2 IN 1 DAY, ORAL : 4 MG 1 IN 1 DAY , ORAL : 4 MG, 2 IN 1 DAY, ORAL : 20 MG, 1 IN 1 DAY, ORAL
     Route: 048
     Dates: start: 20040311, end: 20040312
  11. FORTECORTIN (DEXAMETHASONE) TABLETS [Suspect]
     Indication: NAUSEA
     Dosage: 4 MG, 2 IN 1 DAY, ORAL : 4 MG 1 IN 1 DAY , ORAL : 4 MG, 2 IN 1 DAY, ORAL : 20 MG, 1 IN 1 DAY, ORAL
     Route: 048
     Dates: start: 20040413, end: 20040420
  12. FORTECORTIN (DEXAMETHASONE) TABLETS [Suspect]
     Indication: NAUSEA
     Dosage: 4 MG, 2 IN 1 DAY, ORAL : 4 MG 1 IN 1 DAY , ORAL : 4 MG, 2 IN 1 DAY, ORAL : 20 MG, 1 IN 1 DAY, ORAL
     Route: 048
     Dates: start: 20040506, end: 20040510
  13. FORTECORTIN (DEXAMETHASONE) TABLETS [Suspect]
     Indication: NAUSEA
     Dosage: 4 MG, 2 IN 1 DAY, ORAL : 4 MG 1 IN 1 DAY , ORAL : 4 MG, 2 IN 1 DAY, ORAL : 20 MG, 1 IN 1 DAY, ORAL
     Route: 048
     Dates: start: 20040618, end: 20040618
  14. GRANISETRON [Concomitant]

REACTIONS (2)
  - DUODENAL PERFORATION [None]
  - NAUSEA [None]
